FAERS Safety Report 9798762 (Version 2)
Quarter: 2014Q1

REPORT INFORMATION
  Report Type: Spontaneous
  Country: US (occurrence: US)
  Receive Date: 20140106
  Receipt Date: 20140106
  Transmission Date: 20141002
  Serious: No
  Sender: FDA-Public Use
  Company Number: US-GILEAD-2010-0029656

PATIENT
  Age: 79 Year
  Sex: Female

DRUGS (14)
  1. LETAIRIS [Suspect]
     Indication: PULMONARY ARTERIAL HYPERTENSION
     Route: 048
     Dates: start: 20100518
  2. METOPROLOL [Concomitant]
  3. FIORICET [Concomitant]
  4. ZOMIG [Concomitant]
  5. WARFARIN [Concomitant]
  6. ENALAPRIL [Concomitant]
  7. CRESTOR [Concomitant]
  8. CELEXA [Concomitant]
  9. CALCIUM [Concomitant]
  10. COQ10 [Concomitant]
  11. GLUCOSAMINE/CHONDROITIN [Concomitant]
  12. MVT [Concomitant]
  13. VIT D [Concomitant]
  14. B COMPLETE [Concomitant]

REACTIONS (10)
  - Tinnitus [Not Recovered/Not Resolved]
  - Fatigue [Not Recovered/Not Resolved]
  - Muscular weakness [Not Recovered/Not Resolved]
  - Epistaxis [Recovered/Resolved]
  - Rash pruritic [Not Recovered/Not Resolved]
  - Dyspnoea [Not Recovered/Not Resolved]
  - Palpitations [Recovered/Resolved]
  - Nasal congestion [Recovering/Resolving]
  - Sinusitis [Recovering/Resolving]
  - Headache [Not Recovered/Not Resolved]
